FAERS Safety Report 14121211 (Version 1)
Quarter: 2017Q4

REPORT INFORMATION
  Report Type: Spontaneous
  Country: JP (occurrence: JP)
  Receive Date: 20171024
  Receipt Date: 20171024
  Transmission Date: 20180321
  Serious: Yes (Hospitalization)
  Sender: FDA-Public Use
  Company Number: JP-PFIZER INC-2017421808

PATIENT
  Age: 63 Year
  Sex: Male

DRUGS (20)
  1. TRAZENTA [Concomitant]
     Active Substance: LINAGLIPTIN
     Dosage: 5 MG, 1X/DAY, AFTER BREAKFAST
     Route: 048
  2. TAKECAB [Concomitant]
     Active Substance: VONOPRAZAN FUMURATE
     Dosage: 20 MG, 1X/DAY, AFTER BREAKFAST
     Route: 048
  3. AMITIZA [Concomitant]
     Active Substance: LUBIPROSTONE
     Dosage: 1 DF, 2X/DAY AFTER BREAKFAST AND SUPPER
     Route: 048
  4. SELBEX [Concomitant]
     Active Substance: TEPRENONE
     Dosage: 50 MG, 2X/DAY, AFTER BREAKFAST AND SUPPER
     Route: 048
  5. ENARMON /00069201/ [Concomitant]
     Indication: GONADOTROPHIN RELEASING HORMONE DEFICIENCY
     Dosage: 250 MG, MONTHLY
     Route: 030
  6. PANTOSIN [Concomitant]
     Active Substance: PANTETHINE
     Dosage: 1 G, 2X/DAY, AFTER BREAKFAST AND SUPPER
     Route: 048
  7. ULCERLMIN [Concomitant]
     Active Substance: SUCRALFATE
     Route: 048
  8. AZOPT [Concomitant]
     Active Substance: BRINZOLAMIDE
  9. DETANTOL [Concomitant]
     Active Substance: BUNAZOSIN HYDROCHLORIDE
  10. NIZATIDINE. [Concomitant]
     Active Substance: NIZATIDINE
     Dosage: 150 MG, 2X/DAY, AFTER BREAKFAST AND SUPPER
     Route: 048
  11. XALATAN [Concomitant]
     Active Substance: LATANOPROST
  12. CABERGOLINE. [Suspect]
     Active Substance: CABERGOLINE
     Indication: PITUITARY TUMOUR BENIGN
     Dosage: 0.5 MG, 2X/WEEK (EVERY TUESDAY AND EVERY FRIDAY)
     Route: 048
     Dates: start: 1998
  13. HERBAL NOS [Concomitant]
     Active Substance: HERBALS
     Dosage: 1 DF, 2X/DAY, BEFORE BREAKFAST AND SUPPER
  14. RYZODEG 70/30 [Concomitant]
     Active Substance: INSULIN ASPART\INSULIN DEGLUDEC
     Dosage: 2X/DAY (6 UNITS IN THE MORINIG, 10 UNITS IN THE EVENING)
  15. RYSMON TG [Concomitant]
     Active Substance: TIMOLOL MALEATE
  16. THYRADIN-S [Concomitant]
     Active Substance: LEVOTHYROXINE
     Indication: HYPOTHYROIDISM
     Dosage: 50 UG, 1X/DAY
     Route: 048
  17. PRAVASTATIN SODIUM. [Concomitant]
     Active Substance: PRAVASTATIN SODIUM
     Dosage: 10 MG, 1X/DAY, AFTER SUPPER
     Route: 048
  18. BAYASPIRIN [Concomitant]
     Active Substance: ASPIRIN
     Dosage: 100 MG, 1X/DAY, AFTER BREAKFAST
     Route: 048
     Dates: start: 20170913
  19. YODEL [Concomitant]
     Active Substance: SENNA LEAF
     Dosage: 160 MG, 1X/DAY, BEFORE BEDTIME
     Route: 048
  20. EPADEL /01682401/ [Concomitant]
     Active Substance: ICOSAPENT
     Dosage: 900 MG, 2X/DAY, AFTER BREAKFAST AND SUPPER

REACTIONS (3)
  - Bipolar disorder [Recovered/Resolved]
  - Injury [Unknown]
  - Mania [Recovered/Resolved]

NARRATIVE: CASE EVENT DATE: 20170922
